FAERS Safety Report 24240379 (Version 2)
Quarter: 2024Q3

REPORT INFORMATION
  Report Type: Spontaneous
  Country: US (occurrence: US)
  Receive Date: 20240822
  Receipt Date: 20240926
  Transmission Date: 20241017
  Serious: No
  Sender: MERCK
  Company Number: US-009507513-2407USA015885

PATIENT
  Sex: Male
  Weight: 53.515 kg

DRUGS (15)
  1. WINREVAIR [Suspect]
     Active Substance: SOTATERCEPT-CSRK
     Indication: Product used for unknown indication
     Dosage: UNK
     Route: 065
  2. REMODULIN [Suspect]
     Active Substance: TREPROSTINIL
     Indication: Pulmonary arterial hypertension
     Dosage: 0.2 MICROGRAM PER KILOGRAM, FREQ: CONTINUING
     Route: 041
     Dates: start: 202407
  3. REMODULIN [Suspect]
     Active Substance: TREPROSTINIL
     Dosage: DOSE: UNKNOWN, FREQ: CONTINUING
     Route: 041
     Dates: start: 20240819
  4. REMODULIN [Suspect]
     Active Substance: TREPROSTINIL
     Dosage: THE CURRENT DOSE: 0.2 MICROGRAM PER KILOGRAM, FREQ: CONTINUING
     Route: 041
     Dates: start: 2024
  5. SODIUM CHLORIDE [Concomitant]
     Active Substance: SODIUM CHLORIDE
  6. ESOMEPRAZOLE MAGNESIUM [Concomitant]
     Active Substance: ESOMEPRAZOLE MAGNESIUM
  7. IRON [Concomitant]
     Active Substance: IRON
  8. TADALAFIL [Concomitant]
     Active Substance: TADALAFIL
  9. LOPERAMIDE HYDROCHLORIDE [Concomitant]
     Active Substance: LOPERAMIDE HYDROCHLORIDE
  10. LETAIRIS [Concomitant]
     Active Substance: AMBRISENTAN
  11. VITAMINS [Concomitant]
     Active Substance: VITAMINS
  12. ACETAMINOPHEN [Concomitant]
     Active Substance: ACETAMINOPHEN
  13. ONDANSETRON HYDROCHLORIDE [Concomitant]
     Active Substance: ONDANSETRON HYDROCHLORIDE
  14. POTASSIUM CHLORIDE [Concomitant]
     Active Substance: POTASSIUM CHLORIDE
  15. FAMOTIDINE [Concomitant]
     Active Substance: FAMOTIDINE

REACTIONS (6)
  - Energy increased [Recovered/Resolved]
  - Ill-defined disorder [Recovered/Resolved]
  - Fatigue [Unknown]
  - Platelet count decreased [Unknown]
  - Weight increased [Unknown]
  - Increased appetite [Unknown]

NARRATIVE: CASE EVENT DATE: 20240101
